FAERS Safety Report 8152661-1 (Version None)
Quarter: 2012Q1

REPORT INFORMATION
  Report Type: 
  Country: None (occurrence: None)
  Receive Date: 20120221
  Receipt Date: 20120213
  Transmission Date: 20120608
  Serious: Yes (Hospitalization)
  Sender: FDA-Public Use
  Company Number: PHHY2012IT012938

PATIENT
  Sex: Female

DRUGS (4)
  1. ATENOLOL [Concomitant]
  2. FUROSEMIDE [Concomitant]
     Dates: start: 20120119
  3. PIPERACILLIN AND TAZOBACTAM [Suspect]
     Indication: LIVER ABSCESS
     Dosage: 13.5 G, UNK
     Dates: start: 20111229, end: 20120120
  4. OMEPRAZOLE [Concomitant]
     Dates: start: 20120117, end: 20120126

REACTIONS (3)
  - THROMBOCYTOPENIA [None]
  - LIVER FUNCTION TEST ABNORMAL [None]
  - HAEMOLYSIS [None]
